FAERS Safety Report 6258215-6 (Version None)
Quarter: 2009Q3

REPORT INFORMATION
  Report Type: 
  Country: None (occurrence: None)
  Receive Date: 20090702
  Receipt Date: 20090702
  Transmission Date: 20100115
  Serious: Yes (Life-Threatening, Hospitalization)
  Sender: FDA-Public Use
  Company Number: None

PATIENT
  Age: 63 Year
  Sex: Female
  Weight: 92.9874 kg

DRUGS (2)
  1. LOVENOX [Suspect]
     Indication: PULMONARY EMBOLISM
     Dosage: 90MG -0.9ML- Q12 HOURS SQ
     Route: 058
  2. COUMADIN [Concomitant]

REACTIONS (3)
  - HYPOTENSION [None]
  - RETROPERITONEAL HAEMORRHAGE [None]
  - TACHYCARDIA [None]
